FAERS Safety Report 6918655-6 (Version None)
Quarter: 2010Q3

REPORT INFORMATION
  Report Type: 
  Country: None (occurrence: None)
  Receive Date: 20100811
  Receipt Date: 20100730
  Transmission Date: 20110219
  Serious: Yes (Other)
  Sender: FDA-Public Use
  Company Number: DE-PFIZER INC-2010077581

PATIENT
  Age: 56 Year
  Sex: Male
  Weight: 76 kg

DRUGS (3)
  1. VIAGRA [Suspect]
     Indication: ERECTILE DYSFUNCTION
     Dosage: 50 MG, UNK
     Route: 048
     Dates: start: 20100601
  2. BELNIF [Concomitant]
     Indication: HYPERTENSION
     Dosage: UNK, TWICE DAILY
     Route: 048
  3. RAMIPRIL [Concomitant]
     Indication: HYPERTENSION
     Dosage: UNK, ONCE DAILY
     Route: 048

REACTIONS (3)
  - ASPERMIA [None]
  - EJACULATION FAILURE [None]
  - HYPOSPERMIA [None]
